FAERS Safety Report 5931378-5 (Version None)
Quarter: 2008Q4

REPORT INFORMATION
  Report Type: 
  Country: None (occurrence: None)
  Receive Date: 20081027
  Receipt Date: 20081014
  Transmission Date: 20090506
  Serious: Yes (Hospitalization, Disabling)
  Sender: FDA-Public Use
  Company Number: DE-ROCHE-591869

PATIENT
  Age: 77 Year
  Weight: 49 kg

DRUGS (1)
  1. CAPECITABINE [Suspect]
     Indication: COLORECTAL CANCER
     Route: 065
     Dates: start: 20080519, end: 20080827

REACTIONS (3)
  - DIABETIC COMA [None]
  - FALL [None]
  - LUMBAR VERTEBRAL FRACTURE [None]
